FAERS Safety Report 9887380 (Version 2)
Quarter: 2014Q1

REPORT INFORMATION
  Report Type: Spontaneous
  Country: US (occurrence: US)
  Receive Date: 20140211
  Receipt Date: 20140211
  Transmission Date: 20141002
  Serious: Yes (Other)
  Sender: FDA-Public Use
  Company Number: US-BEH-2012031443

PATIENT
  Sex: Male
  Weight: 94 kg

DRUGS (7)
  1. BERINERT [Suspect]
     Indication: HEREDITARY ANGIOEDEMA
     Dosage: 2000 UNITS PRN AT A RATE OF 4 ML PER MINUTES
     Route: 042
  2. SODIUM CHLORIDE [Concomitant]
  3. ATENOLOL [Concomitant]
  4. PRILOSEC [Concomitant]
  5. PAXIL [Concomitant]
  6. HYDROCHLOROTHIAZIDE [Concomitant]
  7. EPI PEN [Concomitant]

REACTIONS (5)
  - Angioedema [Unknown]
  - Drug ineffective [Unknown]
  - Activities of daily living impaired [Unknown]
  - Therapy change [Unknown]
  - Hereditary angioedema [Unknown]
